FAERS Safety Report 9295260 (Version 2)
Quarter: 2017Q3

REPORT INFORMATION
  Report Type: Report from Study
  Country: US (occurrence: US)
  Receive Date: 20130517
  Receipt Date: 20170913
  Transmission Date: 20171128
  Serious: Yes (Death, Other)
  Sender: FDA-Public Use
  Company Number: US-TEVA-405058USA

PATIENT
  Age: 63 Year
  Sex: Male

DRUGS (1)
  1. COPAXONE [Suspect]
     Active Substance: GLATIRAMER ACETATE
     Indication: MULTIPLE SCLEROSIS
     Dates: start: 20091001

REACTIONS (7)
  - Palpitations [Recovered/Resolved]
  - Blood pressure ambulatory increased [Unknown]
  - Death [Fatal]
  - Dizziness [Recovered/Resolved]
  - Pallor [Recovered/Resolved]
  - Lethargy [Unknown]
  - Confusional state [Recovered/Resolved]

NARRATIVE: CASE EVENT DATE: 20130512
